FAERS Safety Report 9359024 (Version 2)
Quarter: 2013Q3

REPORT INFORMATION
  Report Type: Report from Study
  Country: JP (occurrence: JP)
  Receive Date: 20130620
  Receipt Date: 20130710
  Transmission Date: 20140515
  Serious: Yes (Other)
  Sender: FDA-Public Use
  Company Number: JP-JNJFOC-20130610089

PATIENT
  Age: 51 Year
  Sex: Male
  Weight: 89 kg

DRUGS (7)
  1. STELARA [Suspect]
     Indication: PSORIASIS
     Dosage: 6TH DOSE
     Route: 058
     Dates: start: 20130530
  2. STELARA [Suspect]
     Indication: PSORIASIS
     Route: 058
     Dates: start: 20120522
  3. STELARA [Suspect]
     Indication: PSORIASIS
     Route: 058
     Dates: start: 20120619
  4. DERMOVATE [Concomitant]
     Indication: PSORIASIS
     Route: 061
  5. OXAROL [Concomitant]
     Indication: PSORIASIS
     Route: 061
  6. AMLODIN OD [Concomitant]
     Route: 048
  7. DIOVAN [Concomitant]
     Route: 048

REACTIONS (1)
  - Liver disorder [Not Recovered/Not Resolved]
